FAERS Safety Report 8289398-4 (Version None)
Quarter: 2012Q2

REPORT INFORMATION
  Report Type: 
  Country: None (occurrence: None)
  Receive Date: 20120417
  Receipt Date: 20120412
  Transmission Date: 20120825
  Serious: Yes (Other)
  Sender: FDA-Public Use
  Company Number: US-PFIZER INC-2012092506

PATIENT
  Sex: Male
  Weight: 74.83 kg

DRUGS (1)
  1. VIAGRA [Suspect]
     Indication: ERECTILE DYSFUNCTION
     Dosage: 100MG CUT IN FOUR PARTS, AS NEEDED

REACTIONS (3)
  - DRUG INEFFECTIVE [None]
  - HEPATIC NEOPLASM MALIGNANT [None]
  - DRUG INTERACTION [None]
